FAERS Safety Report 10964086 (Version 2)
Quarter: 2015Q2

REPORT INFORMATION
  Report Type: Spontaneous
  Country: US (occurrence: US)
  Receive Date: 20150329
  Receipt Date: 20150524
  Transmission Date: 20150821
  Serious: Yes (Hospitalization)
  Sender: FDA-Public Use
  Company Number: US-JNJFOC-20140317257

PATIENT
  Age: 49 Year
  Sex: Female

DRUGS (6)
  1. CPT-11 [Suspect]
     Active Substance: IRINOTECAN
     Indication: COLON CANCER
     Dosage: IN CYCLE 1
     Route: 041
     Dates: start: 20131205
  2. DILAUDID [Concomitant]
     Active Substance: HYDROMORPHONE HYDROCHLORIDE
     Indication: ABDOMINAL PAIN
     Route: 065
     Dates: start: 20131210
  3. TAS-102 [Suspect]
     Active Substance: TIPIRACIL\TRIFLURIDINE
     Indication: COLON CANCER
     Dosage: IN CYCLE 1
     Route: 048
     Dates: start: 20131205
  4. FENTANYL TRANSDERMAL SYSTEM [Suspect]
     Active Substance: FENTANYL
     Indication: NAUSEA
     Dosage: AS REQUIRED
     Route: 062
     Dates: start: 20140102, end: 20140103
  5. TAS-102 [Suspect]
     Active Substance: TIPIRACIL\TRIFLURIDINE
     Indication: COLON CANCER
     Route: 048
     Dates: start: 20140102, end: 20140103
  6. CPT-11 [Suspect]
     Active Substance: IRINOTECAN
     Indication: COLON CANCER
     Route: 041
     Dates: start: 20140102, end: 20140102

REACTIONS (3)
  - Nausea [Recovered/Resolved]
  - Product use issue [Unknown]
  - Vomiting [Recovered/Resolved]

NARRATIVE: CASE EVENT DATE: 20140102
